FAERS Safety Report 8550395-2 (Version None)
Quarter: 2012Q3

REPORT INFORMATION
  Report Type: 
  Country: None (occurrence: None)
  Receive Date: 20120730
  Receipt Date: 20120726
  Transmission Date: 20120928
  Serious: Yes (Death, Hospitalization)
  Sender: FDA-Public Use
  Company Number: DE-B.I. PHARMACEUTICALS,INC./RIDGEFIELD-2012-DE-01757DE

PATIENT
  Sex: Female

DRUGS (2)
  1. ANALGESICS [Concomitant]
  2. PRADAXA [Suspect]

REACTIONS (3)
  - MELAENA [None]
  - ANAEMIA [None]
  - PULMONARY EMBOLISM [None]
